FAERS Safety Report 5025434-6 (Version None)
Quarter: 2006Q2

REPORT INFORMATION
  Report Type: 
  Country: None (occurrence: None)
  Receive Date: 20060608
  Receipt Date: 20060530
  Transmission Date: 20061013
  Serious: Yes (Other)
  Sender: FDA-Public Use
  Company Number: OXER20060058

PATIENT
  Age: 61 Year
  Sex: Female

DRUGS (14)
  1. OXYCODONE HCL [Suspect]
     Dosage: 60 MG DAILY PO
     Route: 048
     Dates: start: 20050511
  2. OXYCODONE HCL [Suspect]
     Dosage: 240 MG DAILY PO
     Route: 048
     Dates: start: 20050511, end: 20050729
  3. IMITREX [Concomitant]
  4. NEOSPORIN [Concomitant]
  5. KEFLEX [Concomitant]
  6. PROZAC [Concomitant]
  7. FERROUS SULFATE TAB [Concomitant]
  8. DESYREL [Concomitant]
  9. LEVAQUIN [Concomitant]
  10. POTASSIUM [Concomitant]
  11. ZANTAC [Concomitant]
  12. TRAVATAN [Concomitant]
  13. ALPHAGAN (BRIMONIDINE) [Concomitant]
  14. SENNA CONCENTRATE [Concomitant]

REACTIONS (3)
  - CONDITION AGGRAVATED [None]
  - DIVERTICULITIS [None]
  - DRUG DEPENDENCE [None]
